FAERS Safety Report 18819407 (Version 1)
Quarter: 2021Q1

REPORT INFORMATION
  Report Type: Spontaneous
  Country: NL (occurrence: NL)
  Receive Date: 20210202
  Receipt Date: 20210202
  Transmission Date: 20210419
  Serious: Yes (Hospitalization, Other)
  Sender: FDA-Public Use
  Company Number: NL-TEVA-2021-NL-1874565

PATIENT
  Age: 37 Year
  Sex: Male

DRUGS (2)
  1. HYDROCHLOROTHIAZIDE. [Suspect]
     Active Substance: HYDROCHLOROTHIAZIDE
     Indication: POISONING
     Dosage: 14 TABLETS; PRESCRIBED TO HIS MOTHER
     Route: 048
  2. TERIFLUNOMIDE. [Suspect]
     Active Substance: TERIFLUNOMIDE
     Indication: POISONING
     Dosage: 48 TABLETS
     Route: 048

REACTIONS (7)
  - Overdose [Unknown]
  - Headache [Unknown]
  - Pollakiuria [Unknown]
  - Prescription drug used without a prescription [Unknown]
  - Poisoning [Unknown]
  - Blood pressure increased [Unknown]
  - Electrocardiogram QT prolonged [Unknown]
